FAERS Safety Report 7284425-5 (Version None)
Quarter: 2011Q1

REPORT INFORMATION
  Report Type: 
  Country: None (occurrence: None)
  Receive Date: 20110209
  Receipt Date: 20110120
  Transmission Date: 20110831
  Serious: Yes (Hospitalization, Disabling)
  Sender: FDA-Public Use
  Company Number: PHHY2011FR04549

PATIENT
  Age: 51 Year
  Sex: Female

DRUGS (2)
  1. FEMARA [Suspect]
     Dosage: 2.5 MG,DAILY
     Dates: start: 20090601
  2. TAMOXIFEN CITRATE [Suspect]
     Dosage: DAILY
     Dates: start: 20081201, end: 20090601

REACTIONS (2)
  - OSTEOARTHRITIS [None]
  - OSTEONECROSIS [None]
